FAERS Safety Report 8358592-6 (Version None)
Quarter: 2012Q2

REPORT INFORMATION
  Report Type: 
  Country: None (occurrence: None)
  Receive Date: 20120514
  Receipt Date: 20120508
  Transmission Date: 20120825
  Serious: Yes (Hospitalization)
  Sender: FDA-Public Use
  Company Number: US-BAYER-2012-046294

PATIENT
  Age: 27 Year
  Sex: Female
  Weight: 55.329 kg

DRUGS (4)
  1. CLINDAMYCIN [Concomitant]
     Dosage: UNK
     Dates: start: 20110405
  2. DROSPIRENONE AND ETHINYL ESTRADIOL [Suspect]
  3. SODIUM SULFACET-SULFUR LOTION [Concomitant]
     Dosage: UNK
     Dates: start: 20110317
  4. YAZ [Suspect]

REACTIONS (1)
  - DEEP VEIN THROMBOSIS [None]
